FAERS Safety Report 8018146-8 (Version None)
Quarter: 2011Q4

REPORT INFORMATION
  Report Type: 
  Country: None (occurrence: None)
  Receive Date: 20111228
  Receipt Date: 20111213
  Transmission Date: 20120403
  Serious: Yes (Hospitalization)
  Sender: FDA-Public Use
  Company Number: 1000025963

PATIENT
  Age: 67 Year
  Sex: Male
  Weight: 70 kg

DRUGS (4)
  1. ROFLUMILAST (ROFLUMILAST) [Suspect]
     Dosage: 1 IN 1 D
     Dates: start: 20111004, end: 20111021
  2. FLUTICASONE (FLUTICASONE) (FLUTICASONE) [Concomitant]
  3. AMLODIPINE [Concomitant]
  4. TIOTROPIUM (TIOTROPIUM) (TIOTROPIUM) [Concomitant]

REACTIONS (3)
  - HYPERTENSIVE CRISIS [None]
  - DIZZINESS [None]
  - HEADACHE [None]
